FAERS Safety Report 7552424-1 (Version None)
Quarter: 2011Q2

REPORT INFORMATION
  Report Type: 
  Country: None (occurrence: None)
  Receive Date: 20110616
  Receipt Date: 20110609
  Transmission Date: 20111010
  Serious: Yes (Hospitalization, Other)
  Sender: FDA-Public Use
  Company Number: US-PFIZER INC-2011036240

PATIENT
  Age: 26 Year
  Sex: Male

DRUGS (21)
  1. ZITHROMAX [Suspect]
     Indication: COUGH
  2. TRUVADA [Suspect]
     Dosage: 200 MG, 1  1X/DAY
     Route: 048
     Dates: start: 20101018
  3. DEXAMETHASONE [Concomitant]
     Dosage: UNK
     Dates: end: 20101011
  4. METHYLPREDNISOLONE [Concomitant]
     Dosage: UNK
  5. DIPHENHYDRAMINE [Concomitant]
     Dosage: UNK
  6. ZITHROMAX [Suspect]
     Indication: INFLUENZA LIKE ILLNESS
     Dosage: UNK
     Dates: start: 20101001, end: 20101005
  7. BROMPHENIRAMINE [Suspect]
     Indication: COUGH
  8. TRUVADA [Suspect]
     Indication: HIV INFECTION
     Dosage: 200 MG, 1  1X/DAY
     Route: 048
     Dates: start: 20100723, end: 20101002
  9. BLINDED THERAPY [Suspect]
     Dosage: 150 MG, 1 IN 1 D
     Route: 048
     Dates: start: 20100723, end: 20101002
  10. CLOBETASOL [Concomitant]
     Dosage: UNK
  11. FEXOFENADINE [Concomitant]
     Dosage: UNK
  12. BROMPHENIRAMINE [Suspect]
     Indication: INFLUENZA LIKE ILLNESS
     Dosage: UNK
     Dates: start: 20101001, end: 20101011
  13. RITONAVIR [Concomitant]
     Indication: HIV INFECTION
     Dosage: BLINDED
     Route: 048
  14. ATAZANAVIR [Concomitant]
     Indication: HIV INFECTION
     Dosage: 300 MG, 1  1X/DAY
     Route: 048
     Dates: start: 20100723
  15. RITONAVIR [Concomitant]
     Dosage: UNK
     Dates: start: 20101022
  16. CIMETIDINE [Concomitant]
     Dosage: UNK
  17. BLINDED THERAPY [Suspect]
     Dosage: 150 MG, 1 IN 1 D
     Route: 048
     Dates: start: 20101024
  18. ATAZANAVIR [Concomitant]
     Dosage: 300 MG, 1  1X/DAY
     Route: 048
     Dates: start: 20101020
  19. MOMETASONE [Concomitant]
  20. BENADRYL [Concomitant]
     Indication: INFLUENZA LIKE ILLNESS
  21. BENADRYL [Concomitant]
     Indication: COUGH

REACTIONS (1)
  - VASCULITIS [None]
